FAERS Safety Report 9357244 (Version 2)
Quarter: 2013Q2

REPORT INFORMATION
  Report Type: Spontaneous
  Country: US (occurrence: US)
  Receive Date: 20130620
  Receipt Date: 20130625
  Transmission Date: 20140414
  Serious: Yes (Other)
  Sender: FDA-Public Use
  Company Number: US-RB-055133-13

PATIENT
  Age: 36 Year
  Sex: Male

DRUGS (5)
  1. MUCINEX MAXIMUM STRENGTH [Suspect]
     Indication: PRODUCT USED FOR UNKNOWN INDICATION
     Route: 048
     Dates: start: 2008
  2. MUCINEX FAST-MAX SEVERE CONGESTION + COUGH LIQUID [Suspect]
     Indication: PRODUCT USED FOR UNKNOWN INDICATION
     Dosage: DRUG STOPPED ON 06-JUN-2013, TOOK TOTAL OF 5 DOSES OF DRUG.
     Route: 048
     Dates: start: 20130605
  3. MUCINEX FAST-MAX SEVERE CONGESTION + COUGH LIQUID [Suspect]
  4. MUCINEX FAST-MAX SEVERE CONGESTION + COUGH LIQUID [Suspect]
  5. VITAMINS [Concomitant]
     Indication: PRODUCT USED FOR UNKNOWN INDICATION

REACTIONS (9)
  - VIIth nerve paralysis [Not Recovered/Not Resolved]
  - VIIth nerve paralysis [Not Recovered/Not Resolved]
  - VIIth nerve paralysis [Not Recovered/Not Resolved]
  - Eye disorder [Not Recovered/Not Resolved]
  - Dysarthria [Not Recovered/Not Resolved]
  - Hypoaesthesia [Not Recovered/Not Resolved]
  - Blepharospasm [Not Recovered/Not Resolved]
  - Mastication disorder [Not Recovered/Not Resolved]
  - Facial pain [Not Recovered/Not Resolved]
